FAERS Safety Report 4778826-4 (Version None)
Quarter: 2005Q3

REPORT INFORMATION
  Report Type: 
  Country: None (occurrence: None)
  Receive Date: 20050923
  Receipt Date: 20050913
  Transmission Date: 20060218
  Serious: Yes (Other)
  Sender: FDA-Public Use
  Company Number: 2005127972

PATIENT
  Age: 57 Year
  Sex: Female

DRUGS (1)
  1. DOXYCYCLINE [Suspect]
     Indication: TOOTH ABSCESS
     Dates: start: 20031204, end: 20031204

REACTIONS (1)
  - TONGUE DISCOLOURATION [None]
